FAERS Safety Report 22163877 (Version 1)
Quarter: 2023Q2

REPORT INFORMATION
  Report Type: Spontaneous
  Country: US (occurrence: US)
  Receive Date: 20230401
  Receipt Date: 20230401
  Transmission Date: 20230722
  Serious: No
  Sender: FDA-Public Use
  Company Number: US-009507513-2303USA008048

PATIENT
  Age: 71 Year
  Sex: Female

DRUGS (2)
  1. JANUVIA [Suspect]
     Active Substance: SITAGLIPTIN PHOSPHATE
     Indication: Diabetes mellitus
     Dosage: 100 MG / ONCE DAILY
     Route: 048
     Dates: start: 20221201, end: 202301
  2. FARXIGA [Suspect]
     Active Substance: DAPAGLIFLOZIN PROPANEDIOL
     Dosage: UNK
     Dates: start: 2022

REACTIONS (5)
  - Tremor [Not Recovered/Not Resolved]
  - Gait inability [Not Recovered/Not Resolved]
  - Sleep disorder [Not Recovered/Not Resolved]
  - Blood glucose increased [Unknown]
  - Arthralgia [Recovering/Resolving]

NARRATIVE: CASE EVENT DATE: 20221201
